FAERS Safety Report 12296089 (Version 2)
Quarter: 2016Q2

REPORT INFORMATION
  Report Type: Spontaneous
  Country: IT (occurrence: IT)
  Receive Date: 20160422
  Receipt Date: 20160520
  Transmission Date: 20160815
  Serious: Yes (Hospitalization, Other)
  Sender: FDA-Public Use
  Company Number: IT-PFM-IT-2016-1260

PATIENT
  Age: 72 Year
  Sex: Female

DRUGS (5)
  1. NEBIVOLOL HYDROCHLORIDE [Concomitant]
     Active Substance: NEBIVOLOL HYDROCHLORIDE
     Indication: PRODUCT USED FOR UNKNOWN INDICATION
     Dosage: UNK UNK, UNK
     Route: 065
  2. CALCIUM SANDOZ [Concomitant]
     Active Substance: CALCIUM
     Indication: PRODUCT USED FOR UNKNOWN INDICATION
     Dosage: UNK UNK, UNK
     Route: 048
  3. DIBASE [Concomitant]
     Active Substance: CHOLECALCIFEROL
     Indication: PRODUCT USED FOR UNKNOWN INDICATION
     Dosage: UNK UNK, UNK
     Route: 048
  4. ALENDRONIC ACID [Concomitant]
     Active Substance: ALENDRONIC ACID
     Indication: PRODUCT USED FOR UNKNOWN INDICATION
     Dosage: UNK UNK, UNK
     Route: 048
  5. NAVELBINE [Suspect]
     Active Substance: VINORELBINE TARTRATE
     Indication: BREAST CANCER METASTATIC
     Dosage: 50 MG, UNK
     Route: 048
     Dates: start: 20160322, end: 20160329

REACTIONS (13)
  - Aspartate aminotransferase increased [Recovered/Resolved]
  - Inappropriate schedule of drug administration [Unknown]
  - Monocyte count decreased [Recovered/Resolved]
  - Platelet count increased [Unknown]
  - Blood sodium decreased [Unknown]
  - Alanine aminotransferase increased [Recovered/Resolved]
  - Blood glucose increased [Unknown]
  - C-reactive protein increased [Unknown]
  - Sepsis [Recovered/Resolved with Sequelae]
  - Leukopenia [Recovered/Resolved]
  - Lymphopenia [Recovered/Resolved]
  - Haematocrit decreased [Unknown]
  - Neutropenia [Recovered/Resolved]

NARRATIVE: CASE EVENT DATE: 20160322
